FAERS Safety Report 24736047 (Version 3)
Quarter: 2024Q4

REPORT INFORMATION
  Report Type: Spontaneous
  Country: US (occurrence: US)
  Receive Date: 20241216
  Receipt Date: 20241223
  Transmission Date: 20250114
  Serious: Yes (Other)
  Sender: MERCK
  Company Number: US-009507513-2412USA004825

PATIENT
  Sex: Male

DRUGS (19)
  1. TICE BCG [Suspect]
     Active Substance: BACILLUS CALMETTE-GUERIN SUBSTRAIN TICE LIVE ANTIGEN
     Indication: Bladder cancer
     Dosage: 6 WEEKS/6 INDUCTION TREATMENTS, FULL DOSES
     Dates: start: 202402, end: 202404
  2. TICE BCG [Suspect]
     Active Substance: BACILLUS CALMETTE-GUERIN SUBSTRAIN TICE LIVE ANTIGEN
     Dosage: A HALF DOSE OF TICE BCG AFTER THE INDUCTION TREATMENTS TO START; 1 OF 3 MAINTENANCE DOSE
     Route: 043
     Dates: start: 20241122, end: 20241122
  3. TICE BCG [Suspect]
     Active Substance: BACILLUS CALMETTE-GUERIN SUBSTRAIN TICE LIVE ANTIGEN
     Dosage: 34 MG, 2/3 OF A DOSE OF THE TICE BCG AS HIS SECOND DOSE ON THE MAINTENANCE THERAPY, ONCE
     Route: 043
     Dates: start: 20241204, end: 20241204
  4. GEMCITABINE [Suspect]
     Active Substance: GEMCITABINE
     Indication: Bladder cancer
     Dosage: 2000 MILLIGRAM; 6 INDUCTION TREATMENTS
     Route: 043
     Dates: start: 20240208, end: 2024
  5. LIPITAS [ATORVASTATIN] [Concomitant]
  6. DIPROLENE AF [Concomitant]
     Active Substance: BETAMETHASONE DIPROPIONATE
  7. VITAMIN D3 [Concomitant]
     Active Substance: CHOLECALCIFEROL
  8. COENZYME Q10 [Concomitant]
     Active Substance: DIETARY SUPPLEMENT\UBIDECARENONE
  9. LEXAPRO [Concomitant]
     Active Substance: ESCITALOPRAM OXALATE
     Route: 048
  10. FAMVIR [Concomitant]
     Active Substance: FAMCICLOVIR
     Route: 048
  11. PEPCID [Concomitant]
     Active Substance: FAMOTIDINE
     Route: 048
  12. FLONASE [Concomitant]
     Active Substance: FLUTICASONE PROPIONATE
  13. VASCEPA [Concomitant]
     Active Substance: ICOSAPENT ETHYL
  14. ALLERGY RELIEF [LORATADINE] [Concomitant]
  15. COZAAR [Concomitant]
     Active Substance: LOSARTAN POTASSIUM
  16. VITAMINS [Concomitant]
     Active Substance: VITAMINS
  17. RETIN-A [Concomitant]
     Active Substance: TRETINOIN
  18. VITAMIN B 100 COMPLEX [Concomitant]
  19. ASPIRIN [Concomitant]
     Active Substance: ASPIRIN
     Route: 048

REACTIONS (35)
  - Erectile dysfunction [Recovering/Resolving]
  - Prostate cancer [Unknown]
  - Prostatectomy [Recovered/Resolved]
  - Blood creatinine increased [Unknown]
  - Lower urinary tract symptoms [Recovering/Resolving]
  - Glomerular filtration rate decreased [Unknown]
  - Prostatomegaly [Unknown]
  - Petechiae [Unknown]
  - Bladder trabeculation [Unknown]
  - High intensity focused ultrasound [Recovered/Resolved]
  - Procedural pain [Recovered/Resolved]
  - Decreased appetite [Recovered/Resolved]
  - Bladder catheter removal [Recovered/Resolved]
  - Chromaturia [Unknown]
  - Benign prostatic hyperplasia [Unknown]
  - Urinary hesitation [Unknown]
  - Urine output decreased [Unknown]
  - Prostatitis [Unknown]
  - Prostatic specific antigen increased [Unknown]
  - Monocyte percentage abnormal [Unknown]
  - Basophil percentage decreased [Unknown]
  - Lymphocyte count increased [Unknown]
  - Monocyte count increased [Unknown]
  - Glycosylated haemoglobin increased [Unknown]
  - Insomnia [Unknown]
  - Blood pressure abnormal [Unknown]
  - Incontinence [Unknown]
  - Urine analysis abnormal [Unknown]
  - Prostatic atrophy [Unknown]
  - Panic attack [Unknown]
  - Incorrect dose administered [Unknown]
  - Incorrect dose administered [Unknown]
  - Product availability issue [Unknown]
  - Incorrect dose administered [Unknown]
  - Circumstance or information capable of leading to medication error [Unknown]

NARRATIVE: CASE EVENT DATE: 20240101
